FAERS Safety Report 8252457-6 (Version None)
Quarter: 2012Q2

REPORT INFORMATION
  Report Type: 
  Country: None (occurrence: None)
  Receive Date: 20120402
  Receipt Date: 20110725
  Transmission Date: 20120825
  Serious: No
  Sender: FDA-Public Use
  Company Number: US-ABBOTT-11P-163-0841492-00

PATIENT
  Sex: Male
  Weight: 90.8 kg

DRUGS (3)
  1. ANDROGEL [Suspect]
     Indication: ORCHIDECTOMY
     Route: 061
     Dates: start: 20110501
  2. ASPIRIN [Concomitant]
     Indication: CEREBROVASCULAR ACCIDENT PROPHYLAXIS
  3. IBUPROFEN [Concomitant]
     Indication: MUSCULOSKELETAL STIFFNESS

REACTIONS (1)
  - ABNORMAL BEHAVIOUR [None]
